FAERS Safety Report 15810770 (Version 3)
Quarter: 2019Q1

REPORT INFORMATION
  Report Type: Report from Study
  Country: None (occurrence: CO)
  Receive Date: 20190111
  Receipt Date: 20190316
  Transmission Date: 20190417
  Serious: Yes (Hospitalization)
  Sender: FDA-Public Use
  Company Number: CO-ABBVIE-19K-036-2620359-00

PATIENT
  Age: 58 Year
  Sex: Female
  Weight: 60 kg

DRUGS (2)
  1. HUMIRA [Suspect]
     Active Substance: ADALIMUMAB
     Indication: ANKYLOSING SPONDYLITIS
     Route: 058
     Dates: start: 20140122
  2. HUMIRA [Suspect]
     Active Substance: ADALIMUMAB
     Indication: ANKYLOSING SPONDYLITIS
     Route: 058
     Dates: end: 20181218

REACTIONS (9)
  - Hypoaesthesia [Recovering/Resolving]
  - Osteoarthritis [Unknown]
  - Endoscopy abnormal [Unknown]
  - Thrombophlebitis [Unknown]
  - Diarrhoea [Recovering/Resolving]
  - Colonoscopy abnormal [Unknown]
  - Burning sensation [Unknown]
  - Nuclear magnetic resonance imaging abnormal [Unknown]
  - Pruritus [Unknown]

NARRATIVE: CASE EVENT DATE: 20181212
